FAERS Safety Report 11710724 (Version 2)
Quarter: 2015Q4

REPORT INFORMATION
  Report Type: Spontaneous
  Country: US (occurrence: US)
  Receive Date: 20151104
  Receipt Date: 20151110
  Transmission Date: 20160304
  Serious: No
  Sender: FDA-Public Use
  Company Number: US-ELI_LILLY_AND_COMPANY-US201107001803

PATIENT
  Sex: Female

DRUGS (2)
  1. FORTEO [Suspect]
     Active Substance: TERIPARATIDE
     Indication: OSTEOPOROSIS
     Dosage: 20 UG, QD
     Route: 065
     Dates: start: 20110614
  2. FORTEO [Suspect]
     Active Substance: TERIPARATIDE
     Dosage: 20 UG, QD
     Route: 065

REACTIONS (9)
  - Drug dose omission [Unknown]
  - Arthralgia [Unknown]
  - Arthralgia [Not Recovered/Not Resolved]
  - Musculoskeletal discomfort [Unknown]
  - Nasal congestion [Unknown]
  - Injection site bruising [Unknown]
  - Hypersensitivity [Unknown]
  - Malaise [Unknown]
  - Pain [Unknown]
